FAERS Safety Report 18398844 (Version 2)
Quarter: 2020Q4

REPORT INFORMATION
  Report Type: Spontaneous
  Country: US (occurrence: US)
  Receive Date: 20201019
  Receipt Date: 20201102
  Transmission Date: 20210114
  Serious: Yes (Hospitalization)
  Sender: FDA-Public Use
  Company Number: US-AMNEAL PHARMACEUTICALS-2020-AMRX-03183

PATIENT
  Sex: Male

DRUGS (1)
  1. RYTARY [Suspect]
     Active Substance: CARBIDOPA\LEVODOPA
     Indication: PRODUCT USED FOR UNKNOWN INDICATION
     Dosage: 3 CAPSULES, 4X/DAY
     Route: 048
     Dates: end: 202008

REACTIONS (4)
  - Gait disturbance [Unknown]
  - Gastric ulcer [Recovered/Resolved]
  - Polyp [Recovered/Resolved]
  - Abdominal pain upper [Recovered/Resolved]
